FAERS Safety Report 5705137-2 (Version None)
Quarter: 2008Q2

REPORT INFORMATION
  Report Type: 
  Country: None (occurrence: None)
  Receive Date: 20080410
  Receipt Date: 20080403
  Transmission Date: 20081010
  Serious: Yes (Hospitalization)
  Sender: FDA-Public Use
  Company Number: APP200800215

PATIENT
  Age: 52 Year
  Sex: Male
  Weight: 87.27 kg

DRUGS (10)
  1. NEBUPENT [Suspect]
     Indication: PNEUMOCYSTIS JIROVECI PNEUMONIA
     Dosage: Q MONTH, INHALATION
     Route: 055
     Dates: start: 20080229
  2. NEBUPENT [Suspect]
     Indication: PROPHYLAXIS
     Dosage: Q MONTH, INHALATION
     Route: 055
     Dates: start: 20080229
  3. TEMOZOLOMIDE [Suspect]
     Indication: GLIOBLASTOMA MULTIFORME
     Dosage: 75 MG/M2, DAYS 1-21 EVERY 28 DAYS, ORAL
     Route: 048
     Dates: start: 20080218
  4. TEMOZOLOMIDE [Suspect]
  5. TEMOZOLOMIDE [Suspect]
  6. TEMOZOLOMIDE [Suspect]
  7. NEURONTIN [Concomitant]
  8. PEPCID [Concomitant]
  9. ZOFRAN [Concomitant]
  10. TYLENOL [Concomitant]

REACTIONS (20)
  - ASTHENIA [None]
  - BALANCE DISORDER [None]
  - CHILLS [None]
  - CONFUSIONAL STATE [None]
  - DISEASE PROGRESSION [None]
  - DISORIENTATION [None]
  - FATIGUE [None]
  - GAIT DISTURBANCE [None]
  - HEART RATE INCREASED [None]
  - HEPATITIS [None]
  - HYPOTENSION [None]
  - LUNG DISORDER [None]
  - MENTAL STATUS CHANGES [None]
  - MUSCULAR WEAKNESS [None]
  - PANCREATITIS [None]
  - PYREXIA [None]
  - SEPSIS [None]
  - SOMNOLENCE [None]
  - VERTIGO [None]
  - WHITE BLOOD CELL COUNT INCREASED [None]
